FAERS Safety Report 4761444-1 (Version None)
Quarter: 2005Q3

REPORT INFORMATION
  Report Type: 
  Country: None (occurrence: None)
  Receive Date: 20050901
  Receipt Date: 20050901
  Transmission Date: 20060218
  Serious: Yes (Life-Threatening)
  Sender: FDA-Public Use
  Company Number: None

PATIENT
  Age: 36 Year
  Sex: Male

DRUGS (1)
  1. MORPHINE     30 MG [Suspect]
     Dosage: 30 MG    ONE TIME ORDER

REACTIONS (1)
  - RESPIRATORY DEPRESSION [None]
